FAERS Safety Report 24903563 (Version 1)
Quarter: 2025Q1

REPORT INFORMATION
  Report Type: Spontaneous
  Country: EG (occurrence: EG)
  Receive Date: 20250130
  Receipt Date: 20250130
  Transmission Date: 20250408
  Serious: No
  Sender: ALKEM
  Company Number: EG-ALKEM LABORATORIES LIMITED-EG-ALKEM-2024-04604

PATIENT

DRUGS (1)
  1. ATORVASTATIN CALCIUM [Suspect]
     Active Substance: ATORVASTATIN CALCIUM
     Indication: COVID-19
     Dosage: 40 MILLIGRAM, OD (ONCE DAILY)
     Route: 065

REACTIONS (1)
  - Transaminases increased [Unknown]
